FAERS Safety Report 6107900-5 (Version None)
Quarter: 2009Q1

REPORT INFORMATION
  Report Type: 
  Country: None (occurrence: None)
  Receive Date: 20090309
  Receipt Date: 20090227
  Transmission Date: 20090719
  Serious: Yes (Other)
  Sender: FDA-Public Use
  Company Number: US-MERCK-0809USA04316

PATIENT
  Age: 74 Year
  Sex: Female
  Weight: 79 kg

DRUGS (2)
  1. FOSAMAX [Suspect]
     Route: 048
     Dates: start: 19980101, end: 20070101
  2. ZOMETA [Suspect]
     Route: 042
     Dates: start: 20050401

REACTIONS (15)
  - COLITIS [None]
  - CONSTIPATION [None]
  - DECREASED APPETITE [None]
  - FALL [None]
  - GALLBLADDER DISORDER [None]
  - MUCOSAL INFLAMMATION [None]
  - MULTIPLE MYELOMA [None]
  - ORAL DISORDER [None]
  - OSTEONECROSIS [None]
  - PELVIC FRACTURE [None]
  - POLLAKIURIA [None]
  - SPINAL COMPRESSION FRACTURE [None]
  - SPINAL FRACTURE [None]
  - TRAUMATIC FRACTURE [None]
  - URINARY TRACT INFECTION [None]
